FAERS Safety Report 10613873 (Version 7)
Quarter: 2016Q4

REPORT INFORMATION
  Report Type: Report from Study
  Country: TR (occurrence: TR)
  Receive Date: 20141128
  Receipt Date: 20161014
  Transmission Date: 20170206
  Serious: Yes (Death)
  Sender: FDA-Public Use
  Company Number: TR-ROCHE-1493910

PATIENT
  Age: 69 Year
  Sex: Male
  Weight: 64.5 kg

DRUGS (38)
  1. PRIMSEL [Concomitant]
     Indication: VOMITING
     Route: 042
     Dates: start: 20141117, end: 20141127
  2. BLOOD TRANSFUSION [Concomitant]
     Active Substance: WHOLE BLOOD
     Indication: ANAEMIA
     Dosage: 2 UNIT
     Route: 042
     Dates: start: 20150126, end: 20150126
  3. EMEND [Concomitant]
     Active Substance: APREPITANT
     Indication: VOMITING
     Route: 048
     Dates: start: 20141114, end: 20141114
  4. BUDECORT [Concomitant]
     Active Substance: BUDESONIDE
     Indication: CHRONIC OBSTRUCTIVE PULMONARY DISEASE
     Route: 042
     Dates: start: 20141118, end: 20160530
  5. ACETYLCYSTEINE. [Concomitant]
     Active Substance: ACETYLCYSTEINE
     Indication: CHRONIC OBSTRUCTIVE PULMONARY DISEASE
     Route: 042
     Dates: start: 20141122, end: 20160530
  6. PHENIRAMINE [Concomitant]
     Active Substance: PHENIRAMINE
     Indication: CHILLS
     Route: 042
     Dates: start: 20141114, end: 20141114
  7. DEXAMETHASONE. [Concomitant]
     Active Substance: DEXAMETHASONE
     Indication: CHILLS
     Route: 042
     Dates: start: 20141114, end: 20141114
  8. BLOOD TRANSFUSION [Concomitant]
     Active Substance: WHOLE BLOOD
     Dosage: 1 UNIT
     Route: 042
     Dates: start: 20150414, end: 20150414
  9. MAGNESIUM SULFATE. [Concomitant]
     Active Substance: MAGNESIUM SULFATE
     Indication: NEPHROPATHY
     Dosage: INDICATION -NEPHROPATHY DUE TO CISPLATIN
     Route: 042
     Dates: start: 20141114, end: 20141114
  10. TAMPROST-MR [Concomitant]
     Indication: URINARY TRACT INFECTION
     Route: 048
     Dates: start: 20150324, end: 20150421
  11. CLEXANE [Concomitant]
     Active Substance: ENOXAPARIN SODIUM
     Indication: THROMBOSIS PROPHYLAXIS
     Route: 030
     Dates: start: 20141201, end: 20160530
  12. POTASSIUM CHLORIDE. [Concomitant]
     Active Substance: POTASSIUM CHLORIDE
     Indication: NEPHROPATHY
     Dosage: INDICATION - NEPHROPATHY DUE TO CISPLATIN
     Route: 042
     Dates: start: 20141114, end: 20141114
  13. GAVISCON TABLET (TURKEY) [Concomitant]
     Indication: GASTROOESOPHAGEAL REFLUX DISEASE
     Route: 048
     Dates: start: 20141114
  14. HYDROCHLOROTHIAZIDE/OLMESARTAN MEDOXOMIL [Concomitant]
     Active Substance: HYDROCHLOROTHIAZIDE\OLMESARTAN MEDOXOMIL
     Indication: HYPERTENSION
     Route: 048
     Dates: start: 20060101
  15. METOCLOPRAMIDE HYDROCHLORIDE. [Concomitant]
     Active Substance: METOCLOPRAMIDE HYDROCHLORIDE
     Indication: NAUSEA
     Route: 042
     Dates: start: 20141118, end: 20160530
  16. AMPICILLIN/SULBACTAM [Concomitant]
     Active Substance: AMPICILLIN SODIUM\SULBACTAM SODIUM
     Indication: PERICARDIAL EFFUSION
     Route: 042
     Dates: start: 20150928, end: 20151012
  17. CAPECITABINE. [Suspect]
     Active Substance: CAPECITABINE
     Indication: HER-2 POSITIVE GASTRIC CANCER
     Dosage: MOST RECENT DOSE RECEIVED ON 15/NOV/2014
     Route: 048
     Dates: start: 20141114
  18. PARACETAMOL [Concomitant]
     Active Substance: ACETAMINOPHEN
     Indication: CHILLS
     Route: 048
     Dates: start: 20141114, end: 20141114
  19. AVIL [Concomitant]
     Active Substance: PHENIRAMINE
     Indication: HYPERSENSITIVITY
     Route: 042
     Dates: start: 20141114
  20. NORVASC [Concomitant]
     Active Substance: AMLODIPINE BESYLATE
     Indication: HYPERTENSION
     Route: 048
     Dates: start: 20060101
  21. BLOOD TRANSFUSION [Concomitant]
     Active Substance: WHOLE BLOOD
     Dosage: 1 UNIT
     Route: 042
     Dates: start: 20150224, end: 20150225
  22. BLOOD TRANSFUSION [Concomitant]
     Active Substance: WHOLE BLOOD
     Dosage: 1 UNIT
     Route: 042
     Dates: start: 20150505, end: 20150505
  23. AMPISID (AMPICILLIN/SULBACTAM) [Concomitant]
     Indication: URINARY TRACT INFECTION
     Route: 042
     Dates: start: 20150216, end: 20150226
  24. RANITIDIN [Concomitant]
     Active Substance: RANITIDINE HYDROCHLORIDE
     Indication: GASTROOESOPHAGEAL REFLUX DISEASE
     Route: 042
     Dates: start: 20141114
  25. METOCLOPRAMIDE HYDROCHLORIDE. [Concomitant]
     Active Substance: METOCLOPRAMIDE HYDROCHLORIDE
     Indication: VOMITING
     Route: 042
     Dates: start: 20141117, end: 20141117
  26. TRASTUZUMAB [Suspect]
     Active Substance: TRASTUZUMAB
     Indication: HER-2 POSITIVE GASTRIC CANCER
     Dosage: MOST RECENT DOSE RECEIVED ON 14/NOV/2014, LOADING DOSE
     Route: 042
     Dates: start: 20141114
  27. SULCID (AMPICILLIN SODIUM/SULBACTAM SODIUM) [Concomitant]
     Indication: URINARY TRACT INFECTION
     Dosage: DOSE UNIT=GRAIN
     Route: 042
     Dates: start: 20150216, end: 20150227
  28. EMEND [Concomitant]
     Active Substance: APREPITANT
     Indication: VOMITING
     Route: 048
     Dates: start: 20141115, end: 20141116
  29. LANSOR [Concomitant]
     Active Substance: LANSOPRAZOLE
     Indication: GASTROOESOPHAGEAL REFLUX DISEASE
     Route: 048
     Dates: start: 20141114
  30. PANTOPRAZOLE [Concomitant]
     Active Substance: PANTOPRAZOLE SODIUM
     Indication: GASTROOESOPHAGEAL REFLUX DISEASE
     Route: 048
     Dates: start: 20141118, end: 20160530
  31. BLINDED PERTUZUMAB [Suspect]
     Active Substance: PERTUZUMAB
     Indication: HER-2 POSITIVE GASTRIC CANCER
     Route: 042
     Dates: start: 20141114
  32. CISPLATIN. [Suspect]
     Active Substance: CISPLATIN
     Indication: HER-2 POSITIVE GASTRIC CANCER
     Dosage: MOST RECENT DOSE RECEIVED ON 14/NOV/2014
     Route: 042
     Dates: start: 20141114
  33. BLOOD TRANSFUSION [Concomitant]
     Active Substance: WHOLE BLOOD
     Dosage: 1 UNIT
     Route: 042
     Dates: start: 20150219, end: 20150219
  34. ALOXI [Concomitant]
     Active Substance: PALONOSETRON HYDROCHLORIDE
     Indication: VOMITING
     Route: 042
     Dates: start: 20141114, end: 20141114
  35. DEKORT [Concomitant]
     Active Substance: DEXAMETHASONE
     Indication: HYPERSENSITIVITY
     Route: 042
     Dates: start: 20141114
  36. SULTAMAT [Concomitant]
     Indication: URINARY TRACT INFECTION
     Route: 048
     Dates: start: 20150324, end: 20150329
  37. COMBIVENT [Concomitant]
     Active Substance: ALBUTEROL SULFATE\IPRATROPIUM BROMIDE
     Indication: CHRONIC OBSTRUCTIVE PULMONARY DISEASE
     Dosage: ROUTE: IH (INHALED)
     Route: 065
     Dates: start: 20141122, end: 20160530
  38. HEPARIN SODIUM. [Concomitant]
     Active Substance: HEPARIN SODIUM
     Route: 042
     Dates: start: 20150226, end: 20150226

REACTIONS (1)
  - Acute kidney injury [Fatal]

NARRATIVE: CASE EVENT DATE: 20141117
